FAERS Safety Report 5973086-0 (Version None)
Quarter: 2008Q4

REPORT INFORMATION
  Report Type: 
  Country: None (occurrence: None)
  Receive Date: 20081201
  Receipt Date: 20081118
  Transmission Date: 20090506
  Serious: Yes (Other)
  Sender: FDA-Public Use
  Company Number: US-ROCHE-586888

PATIENT
  Sex: Female

DRUGS (4)
  1. PEGASYS [Suspect]
     Indication: HEPATITIS C
     Dosage: DOSE REPORTED AS FULL DOSE.
     Route: 065
     Dates: start: 20071105, end: 20080428
  2. COPEGUS [Suspect]
     Indication: HEPATITIS C
     Route: 065
     Dates: start: 20071105, end: 20080504
  3. SEROQUEL [Concomitant]
     Dosage: DOSE REPORTED AS: 100 UG AT NIGHT (HS)
     Route: 048
  4. BUSPAR [Concomitant]
     Route: 048

REACTIONS (1)
  - ABORTION SPONTANEOUS [None]
